FAERS Safety Report 15288968 (Version 4)
Quarter: 2019Q1

REPORT INFORMATION
  Report Type: Report from Study
  Country: TR (occurrence: TR)
  Receive Date: 20180817
  Receipt Date: 20190117
  Transmission Date: 20190417
  Serious: Yes (Death, Hospitalization)
  Sender: FDA-Public Use
  Company Number: TR-CELGENEUS-TUR-20180307726

PATIENT
  Age: 58 Year
  Sex: Male
  Weight: 60 kg

DRUGS (13)
  1. NEUPOGEN [Concomitant]
     Active Substance: FILGRASTIM
     Indication: PRODUCT USED FOR UNKNOWN INDICATION
     Route: 065
     Dates: start: 20171127
  2. ASPIRIN. [Concomitant]
     Active Substance: ASPIRIN
     Indication: PRODUCT USED FOR UNKNOWN INDICATION
     Route: 065
     Dates: start: 20171101, end: 20180323
  3. MERONEM [Concomitant]
     Active Substance: MEROPENEM
     Indication: NEUTROPENIA
     Route: 065
     Dates: start: 20180319, end: 20180325
  4. DEXAMETHASONE IV [Suspect]
     Active Substance: DEXAMETHASONE
     Indication: PLASMA CELL MYELOMA
     Dosage: 40 MILLIGRAM
     Route: 041
     Dates: start: 20171109, end: 20180309
  5. AVIL [Concomitant]
     Active Substance: PHENIRAMINE
     Indication: PROPHYLAXIS
     Route: 042
     Dates: start: 20180302, end: 20180302
  6. POMALIDOMIDE [Suspect]
     Active Substance: POMALIDOMIDE
     Indication: PLASMA CELL MYELOMA
     Dosage: 4 MILLIGRAM
     Route: 048
     Dates: start: 20171109, end: 20171216
  7. ZEFFIX [Concomitant]
     Active Substance: LAMIVUDINE
     Indication: PRODUCT USED FOR UNKNOWN INDICATION
     Route: 065
  8. FRESH FROZEN PLASMA [Concomitant]
     Active Substance: HUMAN PLASMA
     Indication: NEUTROPENIA
     Route: 065
     Dates: start: 20180322, end: 20180323
  9. NEVOFAM [Concomitant]
     Indication: PROPHYLAXIS
     Route: 042
     Dates: start: 20180302, end: 20180302
  10. POMALIDOMIDE [Suspect]
     Active Substance: POMALIDOMIDE
     Dosage: 4 MILLIGRAM
     Route: 048
     Dates: start: 20180302, end: 20180314
  11. SAR650984 [Suspect]
     Active Substance: ISATUXIMAB
     Indication: PLASMA CELL MYELOMA
     Dosage: 10 MILLIGRAM/KILOGRAM
     Route: 041
     Dates: start: 20171109, end: 20171109
  12. SAR650984 [Suspect]
     Active Substance: ISATUXIMAB
     Dosage: 10 MILLIGRAM/KILOGRAM
     Route: 041
     Dates: start: 20180314, end: 20180314
  13. VFEND [Concomitant]
     Active Substance: VORICONAZOLE
     Indication: NEUTROPENIA
     Route: 065
     Dates: start: 20180317, end: 20180325

REACTIONS (2)
  - Neutropenia [Recovered/Resolved]
  - Sepsis [Fatal]

NARRATIVE: CASE EVENT DATE: 20180314
